FAERS Safety Report 5982245-2 (Version None)
Quarter: 2008Q4

REPORT INFORMATION
  Report Type: 
  Country: None (occurrence: None)
  Receive Date: 20081208
  Receipt Date: 20081202
  Transmission Date: 20090506
  Serious: Yes (Hospitalization)
  Sender: FDA-Public Use
  Company Number: US-JNJFOC-20081201102

PATIENT
  Age: 27 Year
  Sex: Female

DRUGS (2)
  1. FLEXERIL [Suspect]
     Indication: BACK PAIN
     Dosage: 50-60 MG ONCE
  2. LEXAPRO [Interacting]
     Indication: DEPRESSION

REACTIONS (3)
  - DRUG INTERACTION [None]
  - INTENTIONAL OVERDOSE [None]
  - SEROTONIN SYNDROME [None]
